FAERS Safety Report 8058785-1 (Version None)
Quarter: 2012Q1

REPORT INFORMATION
  Report Type: 
  Country: None (occurrence: None)
  Receive Date: 20120119
  Receipt Date: 20120119
  Transmission Date: 20120608
  Serious: Yes (Other)
  Sender: FDA-Public Use
  Company Number: None

PATIENT
  Age: 77 Year
  Sex: Female
  Weight: 47.1741 kg

DRUGS (1)
  1. PROLIA [Suspect]
     Indication: OSTEOPOROSIS
     Dosage: INJECTION EVERY 6 MOS. SUB-CU
     Route: 058
     Dates: start: 20101229

REACTIONS (11)
  - VISION BLURRED [None]
  - ARTHRALGIA [None]
  - URTICARIA [None]
  - PAIN IN JAW [None]
  - TOOTHACHE [None]
  - RASH [None]
  - BONE PAIN [None]
  - BACK PAIN [None]
  - OEDEMA PERIPHERAL [None]
  - BALANCE DISORDER [None]
  - EYE INFLAMMATION [None]
